FAERS Safety Report 6504928-8 (Version None)
Quarter: 2009Q4

REPORT INFORMATION
  Report Type: 
  Country: None (occurrence: None)
  Receive Date: 20091218
  Receipt Date: 20091214
  Transmission Date: 20100525
  Serious: Yes (Disabling)
  Sender: FDA-Public Use
  Company Number: FI-ROCHE-674474

PATIENT
  Sex: Female
  Weight: 50 kg

DRUGS (5)
  1. BONIVA [Suspect]
     Indication: OSTEOPOROSIS
     Dosage: ONLY ONE TABLET OF BONVIVA WAS TAKEN.
     Route: 048
     Dates: start: 20090901, end: 20090901
  2. BURANA [Concomitant]
     Dosage: WHEN NEEDED
  3. CALCICHEW D3 [Concomitant]
     Dosage: FREQ: 1X2
  4. PANADOL [Concomitant]
     Dosage: FREQ: WHEN NEEDED
  5. ALSUCRAL [Concomitant]

REACTIONS (5)
  - BONE PAIN [None]
  - DYSPHAGIA [None]
  - MYALGIA [None]
  - OESOPHAGEAL STENOSIS [None]
  - PALPITATIONS [None]
